FAERS Safety Report 17423781 (Version 1)
Quarter: 2020Q1

REPORT INFORMATION
  Report Type: Spontaneous
  Country: GB (occurrence: GB)
  Receive Date: 20200217
  Receipt Date: 20200217
  Transmission Date: 20200409
  Serious: Yes (Disabling, Other)
  Sender: FDA-Public Use
  Company Number: GB-TEVA-2020-GB-1186094

PATIENT
  Age: 63 Year
  Sex: Female
  Weight: 50.2 kg

DRUGS (12)
  1. SALBUTAMOL SULFATE [Concomitant]
     Active Substance: ALBUTEROL SULFATE
  2. FUROSEMIDE SODIUM [Concomitant]
     Active Substance: FUROSEMIDE SODIUM
  3. APIXABAN [Concomitant]
     Active Substance: APIXABAN
  4. DIGOXIN. [Concomitant]
     Active Substance: DIGOXIN
  5. TRAMADOL HYDROCHLORIDE. [Suspect]
     Active Substance: TRAMADOL HYDROCHLORIDE
     Indication: BACK PAIN
     Dosage: ONE OR TWO TO BE TAKEN FOUR TIMES DAILY (50MG)
     Route: 048
     Dates: start: 20200116, end: 20200128
  6. CETIRIZINE DIHYDROCHLORIDE [Concomitant]
     Active Substance: CETIRIZINE HYDROCHLORIDE
  7. EPLERENONE. [Concomitant]
     Active Substance: EPLERENONE
  8. BISOPROLOL FUMARATE. [Concomitant]
     Active Substance: BISOPROLOL FUMARATE
  9. BENZOCAINE. [Concomitant]
     Active Substance: BENZOCAINE
     Route: 050
  10. ACICLOVIR [Concomitant]
     Active Substance: ACYCLOVIR
  11. SERETIDE [Concomitant]
     Active Substance: FLUTICASONE PROPIONATE\SALMETEROL XINAFOATE
  12. RAMIPRIL. [Concomitant]
     Active Substance: RAMIPRIL

REACTIONS (21)
  - Nausea [Not Recovered/Not Resolved]
  - Somnolence [Unknown]
  - Bradycardia [Unknown]
  - Hypotension [Not Recovered/Not Resolved]
  - Anxiety [Not Recovered/Not Resolved]
  - Discomfort [Not Recovered/Not Resolved]
  - Dizziness [Not Recovered/Not Resolved]
  - Muscle spasms [Not Recovered/Not Resolved]
  - Muscle contractions involuntary [Unknown]
  - Abdominal distension [Unknown]
  - Nightmare [Not Recovered/Not Resolved]
  - Hyperhidrosis [Unknown]
  - Sleep disorder [Not Recovered/Not Resolved]
  - Chest pain [Unknown]
  - Fatigue [Not Recovered/Not Resolved]
  - Dry mouth [Not Recovered/Not Resolved]
  - Hypertension [Not Recovered/Not Resolved]
  - Vision blurred [Unknown]
  - Headache [Not Recovered/Not Resolved]
  - Tachycardia [Unknown]
  - Decreased appetite [Unknown]

NARRATIVE: CASE EVENT DATE: 20200120
